FAERS Safety Report 9466395 (Version 2)
Quarter: 2013Q4

REPORT INFORMATION
  Report Type: Spontaneous
  Country: CA (occurrence: CA)
  Receive Date: 20130820
  Receipt Date: 20131203
  Transmission Date: 20140711
  Serious: Yes (Hospitalization)
  Sender: FDA-Public Use
  Company Number: CA-SANOFI-AVENTIS-2013SA081190

PATIENT
  Age: 60 Year
  Sex: Female

DRUGS (10)
  1. DOCETAXEL [Suspect]
     Indication: BREAST CANCER
     Route: 042
     Dates: start: 20011228, end: 20020320
  2. CARBOPLATIN [Suspect]
     Indication: BREAST CANCER
     Route: 042
     Dates: start: 20020227
  3. CARBOPLATIN [Suspect]
     Indication: BREAST CANCER
     Route: 042
  4. CISPLATIN [Suspect]
     Indication: BREAST CANCER
     Route: 042
     Dates: start: 20011228, end: 20020206
  5. HERCEPTIN [Suspect]
     Indication: BREAST CANCER
     Route: 042
     Dates: start: 200201
  6. HERCEPTIN [Suspect]
     Indication: BREAST CANCER
     Route: 042
     Dates: start: 20011227
  7. ZOCOR [Concomitant]
  8. ZOLOFT [Concomitant]
  9. HYDROCHLOROTHIAZIDE [Concomitant]
  10. BENALAPRIL [Concomitant]

REACTIONS (14)
  - Acoustic stimulation tests abnormal [Unknown]
  - Diarrhoea [Unknown]
  - Febrile neutropenia [Recovered/Resolved]
  - Headache [Unknown]
  - Amnesia [Recovered/Resolved]
  - Nausea [Unknown]
  - Neuropathy peripheral [Recovered/Resolved with Sequelae]
  - Areflexia [Unknown]
  - Asthenia [Unknown]
  - Ataxia [Unknown]
  - Gait disturbance [Unknown]
  - Neuromyopathy [Unknown]
  - Speech disorder [Unknown]
  - Vomiting [Unknown]
